FAERS Safety Report 14972885 (Version 1)
Quarter: 2018Q2

REPORT INFORMATION
  Report Type: Spontaneous
  Country: RU (occurrence: RU)
  Receive Date: 20180605
  Receipt Date: 20180605
  Transmission Date: 20180711
  Serious: Yes (Other)
  Sender: FDA-Public Use
  Company Number: RU-ROCHE-2130172

PATIENT
  Age: 72 Year
  Sex: Female

DRUGS (1)
  1. VISMODEGIB. [Suspect]
     Active Substance: VISMODEGIB
     Indication: BASAL CELL CARCINOMA
     Dosage: BREAK INTERVAL FROM 21 MAY 2014 TILL 18 JULY 2014.
     Route: 065
     Dates: start: 20130329, end: 20141019

REACTIONS (8)
  - Alopecia [Unknown]
  - Weight decreased [Unknown]
  - Nausea [Unknown]
  - Dysgeusia [Unknown]
  - Basal cell carcinoma [Unknown]
  - Muscle spasms [Unknown]
  - Vomiting [Unknown]
  - Headache [Unknown]
